FAERS Safety Report 25483452 (Version 2)
Quarter: 2025Q3

REPORT INFORMATION
  Report Type: Report from Study
  Country: US (occurrence: US)
  Receive Date: 20250626
  Receipt Date: 20250709
  Transmission Date: 20251021
  Serious: Yes (Other)
  Sender: TRAVERE THERAPEUTICS
  Company Number: US-TRAVERE-2025TVT00979

PATIENT
  Age: 24 Year
  Sex: Female

DRUGS (7)
  1. FILSPARI [Suspect]
     Active Substance: SPARSENTAN
     Indication: IgA nephropathy
     Route: 048
     Dates: start: 20250417
  2. AMLODIPINE BESYLATE [Concomitant]
     Active Substance: AMLODIPINE BESYLATE
  3. BUSPIRONE HCL [Concomitant]
     Active Substance: BUSPIRONE HYDROCHLORIDE
  4. DEPO-PROVERA [Concomitant]
     Active Substance: MEDROXYPROGESTERONE ACETATE
  5. FABHALTA [Concomitant]
     Active Substance: IPTACOPAN HYDROCHLORIDE
  6. METOPROLOL [Concomitant]
     Active Substance: METOPROLOL
  7. SERTRALINE HYDROCHLORIDE [Concomitant]
     Active Substance: SERTRALINE HYDROCHLORIDE

REACTIONS (20)
  - Glomerular filtration rate decreased [Recovering/Resolving]
  - Urine albumin/creatinine ratio increased [Recovering/Resolving]
  - Blood chloride increased [Recovering/Resolving]
  - Blood creatinine increased [Recovering/Resolving]
  - Globulins increased [Recovering/Resolving]
  - Urine abnormality [Unknown]
  - Protein urine present [Recovering/Resolving]
  - Blood urine present [Recovering/Resolving]
  - White blood cells urine abnormal [None]
  - Urinary casts [Unknown]
  - Blood urea increased [Recovering/Resolving]
  - Blood alkaline phosphatase increased [Recovering/Resolving]
  - White blood cells urine positive [Unknown]
  - Bacterial test positive [None]
  - Differential white blood cell count abnormal [Recovering/Resolving]
  - Neutrophil count increased [Recovering/Resolving]
  - Alopecia [Unknown]
  - Fatigue [Unknown]
  - Snoring [Unknown]
  - Blood pressure decreased [Unknown]

NARRATIVE: CASE EVENT DATE: 20250417
